FAERS Safety Report 20542810 (Version 2)
Quarter: 2022Q2

REPORT INFORMATION
  Report Type: Report from Study
  Country: PA (occurrence: PA)
  Receive Date: 20220302
  Receipt Date: 20220408
  Transmission Date: 20220721
  Serious: Yes (Other)
  Sender: FDA-Public Use
  Company Number: PA-NOVARTISPH-NVSC2022PA040826

PATIENT
  Sex: Female

DRUGS (10)
  1. KISQALI [Suspect]
     Active Substance: RIBOCICLIB
     Indication: Breast cancer
     Dosage: 400 MG, QD
     Route: 048
     Dates: start: 201902
  2. KISQALI [Suspect]
     Active Substance: RIBOCICLIB
     Indication: Breast cancer metastatic
     Dosage: 200 MG, QD
     Route: 048
  3. KISQALI [Suspect]
     Active Substance: RIBOCICLIB
     Dosage: 3 DOSAGE FORM, QD
     Route: 048
  4. KISQALI [Suspect]
     Active Substance: RIBOCICLIB
     Dosage: 200 MG
     Route: 048
     Dates: start: 201902
  5. KISQALI [Suspect]
     Active Substance: RIBOCICLIB
     Dosage: 600 MG (3 TABLETS)
     Route: 048
     Dates: start: 201902
  6. KISQALI [Suspect]
     Active Substance: RIBOCICLIB
     Dosage: 2 DOSAGE FORM
     Route: 048
  7. KISQALI [Suspect]
     Active Substance: RIBOCICLIB
     Dosage: 3 DOSAGE FORM, QD
     Route: 048
  8. KISQALI [Suspect]
     Active Substance: RIBOCICLIB
     Dosage: 400 MG (2 TABLET, DAILY)
     Route: 048
     Dates: end: 202202
  9. KISQALI [Suspect]
     Active Substance: RIBOCICLIB
     Dosage: 200 MG (1 TABLET, DAILY)
     Route: 048
     Dates: start: 202202
  10. ANASTROZOLE [Suspect]
     Active Substance: ANASTROZOLE
     Indication: Breast cancer
     Dosage: 2 MG, QD (TABLET)
     Route: 065
     Dates: start: 201902

REACTIONS (11)
  - Metastases to spine [Recovering/Resolving]
  - Decreased immune responsiveness [Unknown]
  - Computerised tomogram abnormal [Unknown]
  - Blood pressure increased [Unknown]
  - Back pain [Unknown]
  - Vision blurred [Unknown]
  - Nausea [Unknown]
  - Headache [Unknown]
  - Blood cholesterol increased [Unknown]
  - Nasopharyngitis [Recovered/Resolved]
  - Bone pain [Unknown]

NARRATIVE: CASE EVENT DATE: 20210101
